FAERS Safety Report 6483688-3 (Version None)
Quarter: 2009Q4

REPORT INFORMATION
  Report Type: 
  Country: None (occurrence: None)
  Receive Date: 20091209
  Receipt Date: 20090519
  Transmission Date: 20100525
  Serious: No
  Sender: FDA-Public Use
  Company Number: US-AMGEN-KDL345471

PATIENT
  Sex: Female
  Weight: 89 kg

DRUGS (7)
  1. ENBREL [Suspect]
     Indication: RHEUMATOID ARTHRITIS
     Route: 058
     Dates: start: 20090501
  2. METHOTREXATE [Concomitant]
     Route: 048
     Dates: start: 20080829
  3. NABUMETONE [Concomitant]
     Dates: start: 20071218
  4. FOLIC ACID [Concomitant]
     Dates: start: 20080829
  5. PLAQUENIL [Concomitant]
     Dates: start: 20080307
  6. ZANAFLEX [Concomitant]
  7. ZANTAC [Concomitant]

REACTIONS (3)
  - NASOPHARYNGITIS [None]
  - PAIN [None]
  - SLUGGISHNESS [None]
